FAERS Safety Report 16527411 (Version 3)
Quarter: 2019Q4

REPORT INFORMATION
  Report Type: Report from Study
  Country: JP (occurrence: JP)
  Receive Date: 20190704
  Receipt Date: 20191010
  Transmission Date: 20200122
  Serious: Yes (Death, Other)
  Sender: FDA-Public Use
  Company Number: JP-UCBSA-2019010160

PATIENT
  Age: 77 Year
  Sex: Male
  Weight: 41 kg

DRUGS (6)
  1. LACOSAMIDE. [Suspect]
     Active Substance: LACOSAMIDE
     Dosage: 100 MG, 2X/DAY (BID)
     Route: 048
     Dates: start: 20180315, end: 20181111
  2. E KEPPRA [Concomitant]
     Active Substance: LEVETIRACETAM
     Dosage: 1000 MILLIGRAM
     Route: 048
     Dates: end: 20181111
  3. FYCOMPA [Concomitant]
     Active Substance: PERAMPANEL
     Route: 048
     Dates: start: 20180614, end: 20181111
  4. FYCOMPA [Concomitant]
     Active Substance: PERAMPANEL
     Indication: PARTIAL SEIZURES WITH SECONDARY GENERALISATION
     Dosage: 2 MG, DIALY
     Route: 048
     Dates: start: 20180614, end: 20181111
  5. LACOSAMIDE. [Suspect]
     Active Substance: LACOSAMIDE
     Indication: PARTIAL SEIZURES WITH SECONDARY GENERALISATION
     Dosage: 50 MG, 2X/DAY (BID)
     Route: 048
     Dates: start: 20180308, end: 20180314
  6. E KEPPRA [Concomitant]
     Active Substance: LEVETIRACETAM
     Indication: PARTIAL SEIZURES WITH SECONDARY GENERALISATION
     Dosage: 1000 MG ,DAILY
     Route: 048
     Dates: end: 20181111

REACTIONS (2)
  - Pneumonia aspiration [Fatal]
  - Atrioventricular block [Not Recovered/Not Resolved]

NARRATIVE: CASE EVENT DATE: 20181111
